FAERS Safety Report 8731833 (Version 3)
Quarter: 2012Q4

REPORT INFORMATION
  Report Type: Spontaneous
  Country: BR (occurrence: None)
  Receive Date: 20120801
  Receipt Date: 20120831
  Transmission Date: 20130627
  Serious: Yes (Other)
  Sender: FDA-Public Use
  Company Number: ENTC2012-0332

PATIENT
  Age: 67 Year
  Sex: Female

DRUGS (8)
  1. STALEVO [Suspect]
     Indication: PARKINSON^S DISEASE
     Dosage: 3 TABLETS A DAY, 50/12.5/200 MG (IN FASTING, AT 11:00 AND 16:00) ORAL
     Route: 048
     Dates: start: 2012
  2. PHENOBARBITAL [Concomitant]
  3. QUETIAPIM [Concomitant]
  4. DEPAKOTE [Concomitant]
  5. PRAMIPEXOLE DIHYDROCHLORIDE [Concomitant]
  6. HIDANTAL [Concomitant]
  7. PROLOPA [Concomitant]
  8. EXELON [Concomitant]

REACTIONS (5)
  - Dementia Alzheimer^s type [None]
  - Nausea [None]
  - Dizziness [None]
  - Malaise [None]
  - Salivary hypersecretion [None]
